FAERS Safety Report 4804019-8 (Version None)
Quarter: 2005Q4

REPORT INFORMATION
  Report Type: 
  Country: None (occurrence: None)
  Receive Date: 20051014
  Receipt Date: 20051004
  Transmission Date: 20060501
  Serious: Yes (Other)
  Sender: FDA-Public Use
  Company Number: PHO 2005-030

PATIENT
  Age: 64 Year
  Sex: Male

DRUGS (1)
  1. PHOTOFRIN [Suspect]
     Indication: OESOPHAGEAL SQUAMOUS CELL CARCINOMA RECURRENT
     Dosage: 2 MG/KG IV
     Route: 042
     Dates: start: 19970301

REACTIONS (3)
  - DYSPHAGIA [None]
  - PRODUCTIVE COUGH [None]
  - TRACHEO-OESOPHAGEAL FISTULA [None]
